FAERS Safety Report 4431339-1 (Version None)
Quarter: 2004Q3

REPORT INFORMATION
  Report Type: 
  Country: None (occurrence: None)
  Receive Date: 20040818
  Receipt Date: 20040802
  Transmission Date: 20050211
  Serious: Yes (Hospitalization)
  Sender: FDA-Public Use
  Company Number: DSA_24585_2004

PATIENT
  Age: 74 Year
  Sex: Male
  Weight: 77.5651 kg

DRUGS (13)
  1. CARDIZEM [Suspect]
     Dosage: DF
     Dates: end: 20040701
  2. DILTIAZEM [Suspect]
     Indication: BLOOD PRESSURE
     Dosage: 30 MG BID PO
     Route: 048
     Dates: start: 20040601, end: 20040701
  3. DILTIAZEM (PUREPAK BAND) [Suspect]
     Indication: HYPERTENSION
     Dosage: 120 MG Q DAY
     Dates: start: 20030730, end: 20040501
  4. LASIX [Concomitant]
  5. LEXAPRO [Concomitant]
  6. PROTONIX [Concomitant]
  7. DIGITEK [Concomitant]
  8. COUMADIN [Concomitant]
  9. ENALARPIL [Concomitant]
  10. GLIPIZIDE [Concomitant]
  11. ADVAIR DISKUS 100/50 [Concomitant]
  12. IRON [Concomitant]
  13. COLCHICINE [Concomitant]

REACTIONS (5)
  - BLOOD POTASSIUM DECREASED [None]
  - BRADYCARDIA [None]
  - CARDIAC FAILURE CONGESTIVE [None]
  - CONDITION AGGRAVATED [None]
  - TOOTH DISCOLOURATION [None]
